FAERS Safety Report 8296631-1 (Version None)
Quarter: 2012Q2

REPORT INFORMATION
  Report Type: 
  Country: None (occurrence: None)
  Receive Date: 20120418
  Receipt Date: 20120418
  Transmission Date: 20120825
  Serious: Yes (Other)
  Sender: FDA-Public Use
  Company Number: None

PATIENT
  Sex: Male
  Weight: 79.378 kg

DRUGS (2)
  1. TRAZODONE HCL [Concomitant]
  2. TRAZODONE HCL [Suspect]
     Indication: INSOMNIA
     Dosage: 1 TO 3 TABLETS
     Route: 048
     Dates: start: 20120101, end: 20120410

REACTIONS (1)
  - UNWANTED AWARENESS DURING ANAESTHESIA [None]
